FAERS Safety Report 6136702-9 (Version None)
Quarter: 2009Q1

REPORT INFORMATION
  Report Type: 
  Country: None (occurrence: None)
  Receive Date: 20090330
  Receipt Date: 20090323
  Transmission Date: 20090719
  Serious: Yes (Other)
  Sender: FDA-Public Use
  Company Number: PHEH2009US02421

PATIENT
  Sex: Female

DRUGS (4)
  1. RECLAST [Suspect]
     Indication: BONE DENSITY DECREASED
  2. CALCIUM [Concomitant]
  3. VITAMIN D [Concomitant]
  4. SYNTHROID [Concomitant]

REACTIONS (2)
  - NERVE INJURY [None]
  - PAIN IN EXTREMITY [None]
